FAERS Safety Report 21083067 (Version 1)
Quarter: 2022Q3

REPORT INFORMATION
  Report Type: Spontaneous
  Country: US (occurrence: None)
  Receive Date: 20220714
  Receipt Date: 20220714
  Transmission Date: 20221027
  Serious: Yes (Other)
  Sender: FDA-Public Use
  Company Number: None

PATIENT
  Age: 67 Year
  Sex: Female
  Weight: 72 kg

DRUGS (10)
  1. PAXLOVID [Suspect]
     Active Substance: NIRMATRELVIR\RITONAVIR
  2. PROPRANOLOL [Concomitant]
     Active Substance: PROPRANOLOL HYDROCHLORIDE
  3. RITALIN [Concomitant]
     Active Substance: METHYLPHENIDATE HYDROCHLORIDE
  4. ARMOUR THYROID [Concomitant]
     Active Substance: THYROID, PORCINE
  5. POTASSIUM [Concomitant]
     Active Substance: POTASSIUM
  6. LASIX [Concomitant]
     Active Substance: FUROSEMIDE
  7. VITAMIN D3 [Concomitant]
     Active Substance: CHOLECALCIFEROL
  8. VITAMIN C [Concomitant]
     Active Substance: ASCORBIC ACID
  9. ZINC [Concomitant]
     Active Substance: ZINC
  10. Oil of Oregano [Concomitant]

REACTIONS (2)
  - Headache [None]
  - Hypersensitivity [None]

NARRATIVE: CASE EVENT DATE: 20220713
